FAERS Safety Report 22024947 (Version 1)
Quarter: 2023Q1

REPORT INFORMATION
  Report Type: Spontaneous
  Country: US (occurrence: None)
  Receive Date: 20230223
  Receipt Date: 20230223
  Transmission Date: 20230417
  Serious: No
  Sender: FDA-Public Use
  Company Number: US-ROCHE-3084760

PATIENT
  Age: 84 Year
  Sex: Female

DRUGS (2)
  1. XOLAIR [Suspect]
     Active Substance: OMALIZUMAB
     Indication: Idiopathic urticaria
     Dosage: (STRENGTH: 150MG)
     Route: 058
     Dates: start: 201801
  2. SYNVISC [Concomitant]
     Active Substance: HYLAN G-F 20

REACTIONS (8)
  - Hypersensitivity [Unknown]
  - Erythema [Unknown]
  - Urticaria [Recovered/Resolved]
  - Blister rupture [Recovered/Resolved]
  - Erythema [Unknown]
  - Unevaluable event [Unknown]
  - Gastrointestinal pain [Unknown]
  - Bladder pain [Unknown]

NARRATIVE: CASE EVENT DATE: 20220409
